FAERS Safety Report 18400019 (Version 1)
Quarter: 2020Q4

REPORT INFORMATION
  Report Type: Spontaneous
  Country: US (occurrence: US)
  Receive Date: 20201019
  Receipt Date: 20201019
  Transmission Date: 20210114
  Serious: No
  Sender: FDA-Public Use
  Company Number: US-ALLERGAN-2002185US

PATIENT
  Sex: Female

DRUGS (7)
  1. LISINOPRIL. [Concomitant]
     Active Substance: LISINOPRIL
     Indication: HYPERTENSION
  2. MELOXICAM. [Concomitant]
     Active Substance: MELOXICAM
     Indication: ARTHRITIS
  3. RISPERIDONE. [Concomitant]
     Active Substance: RISPERIDONE
  4. ALLOPURINOL. [Concomitant]
     Active Substance: ALLOPURINOL
     Indication: GOUT
  5. HYDROXYZINE [Concomitant]
     Active Substance: HYDROXYZINE HYDROCHLORIDE
     Indication: SLEEP DISORDER
  6. OMEPRAZOLE. [Concomitant]
     Active Substance: OMEPRAZOLE
  7. VRAYLAR [Suspect]
     Active Substance: CARIPRAZINE
     Indication: DELUSIONAL DISORDER, UNSPECIFIED TYPE
     Dosage: UNK, QD
     Route: 048

REACTIONS (8)
  - Gait disturbance [Recovered/Resolved]
  - Pain [Recovered/Resolved]
  - Balance disorder [Not Recovered/Not Resolved]
  - Muscular weakness [Recovered/Resolved]
  - Off label use [Unknown]
  - Fall [Recovered/Resolved]
  - Limb discomfort [Not Recovered/Not Resolved]
  - Muscle spasms [Recovered/Resolved]
